FAERS Safety Report 24442712 (Version 2)
Quarter: 2024Q4

REPORT INFORMATION
  Report Type: Report from Study
  Country: US (occurrence: US)
  Receive Date: 20241016
  Receipt Date: 20241017
  Transmission Date: 20250115
  Serious: No
  Sender: ROCHE
  Company Number: US-ROCHE-3558935

PATIENT
  Age: 55 Year
  Sex: Male

DRUGS (1)
  1. HEMLIBRA [Suspect]
     Active Substance: EMICIZUMAB-KXWH
     Indication: Acquired haemophilia
     Dosage: WEEKLY 3 DOSES THEN EVERY 2 WEEKS
     Route: 065
     Dates: start: 20240430

REACTIONS (1)
  - Haemorrhage [Unknown]
